FAERS Safety Report 5742819-0 (Version None)
Quarter: 2008Q2

REPORT INFORMATION
  Report Type: 
  Country: None (occurrence: None)
  Receive Date: 20080519
  Receipt Date: 20080507
  Transmission Date: 20081010
  Serious: Yes (Hospitalization, Other)
  Sender: FDA-Public Use
  Company Number: RS-ROCHE-562964

PATIENT
  Sex: Female
  Weight: 70 kg

DRUGS (2)
  1. XELODA [Suspect]
     Dosage: FORMULATION: FILM-COATED TABLET. DOSAGE REGIMWN REPORTED AS: (4+0+3 TABLETS).
     Route: 048
     Dates: start: 20080114
  2. PRESOLOL [Concomitant]
     Dosage: GENERIC NAME REPORTED AS: PROPRANOLOL.
     Route: 048

REACTIONS (9)
  - ABDOMINAL PAIN [None]
  - ABSCESS [None]
  - ANAEMIA [None]
  - COLITIS [None]
  - CYTOMEGALOVIRUS INFECTION [None]
  - DIARRHOEA HAEMORRHAGIC [None]
  - HYPOKALAEMIA [None]
  - HYPOPROTEINAEMIA [None]
  - ORAL DISORDER [None]
